FAERS Safety Report 9715891 (Version 1)
Quarter: 2013Q4

REPORT INFORMATION
  Report Type: Report from Study
  Country: US (occurrence: US)
  Receive Date: 20131127
  Receipt Date: 20131127
  Transmission Date: 20140711
  Serious: Yes (Other)
  Sender: FDA-Public Use
  Company Number: US-ROCHE-1305429

PATIENT
  Age: 13 Year
  Sex: Male
  Weight: 46.3 kg

DRUGS (6)
  1. NUTROPIN [Suspect]
     Indication: BODY HEIGHT BELOW NORMAL
     Route: 058
     Dates: end: 20120927
  2. NUTROPIN [Suspect]
     Route: 058
     Dates: start: 20120927, end: 20121227
  3. NUTROPIN [Suspect]
     Route: 058
     Dates: start: 20121227, end: 20130412
  4. NUTROPIN [Suspect]
     Route: 058
     Dates: start: 20131104
  5. ASMANEX [Concomitant]
     Dosage: 2 PUFFS
     Route: 048
  6. DIFFERIN GEL [Concomitant]
     Route: 061

REACTIONS (5)
  - Limb asymmetry [Unknown]
  - Acne [Unknown]
  - Headache [Unknown]
  - Initial insomnia [Unknown]
  - Constipation [Unknown]
